FAERS Safety Report 7397444-5 (Version None)
Quarter: 2011Q2

REPORT INFORMATION
  Report Type: 
  Country: None (occurrence: None)
  Receive Date: 20110406
  Receipt Date: 20110323
  Transmission Date: 20111010
  Serious: Yes (Hospitalization, Other)
  Sender: FDA-Public Use
  Company Number: PHHY2011GR24416

PATIENT
  Age: 67 Year
  Sex: Male

DRUGS (4)
  1. PACLITAXEL [Concomitant]
     Indication: METASTASES TO BONE
  2. ZOLEDRONIC ACID [Suspect]
     Indication: METASTASES TO BONE
     Dosage: 4 MG, PER MONTH
     Route: 042
  3. BEVACIZUMAB [Suspect]
     Indication: METASTASES TO CENTRAL NERVOUS SYSTEM
  4. RADIATION THERAPY [Concomitant]

REACTIONS (24)
  - KIDNEY FIBROSIS [None]
  - OLIGURIA [None]
  - NEOPLASM MALIGNANT [None]
  - HAEMATURIA [None]
  - OEDEMA PERIPHERAL [None]
  - PROTEINURIA [None]
  - DYSPNOEA [None]
  - NORMOCHROMIC NORMOCYTIC ANAEMIA [None]
  - GLOMERULONEPHRITIS RAPIDLY PROGRESSIVE [None]
  - PULMONARY OEDEMA [None]
  - LYMPHOCYTIC INFILTRATION [None]
  - GENERAL PHYSICAL HEALTH DETERIORATION [None]
  - HYPERTENSION [None]
  - RENAL TUBULAR ATROPHY [None]
  - HAPTOGLOBIN DECREASED [None]
  - BLOOD LACTATE DEHYDROGENASE INCREASED [None]
  - RENAL FAILURE ACUTE [None]
  - BLOOD CREATININE INCREASED [None]
  - RESPIRATORY FAILURE [None]
  - GLOMERULONEPHRITIS PROLIFERATIVE [None]
  - RENAL IMPAIRMENT [None]
  - ULTRASOUND KIDNEY ABNORMAL [None]
  - ARTERIAL FIBROSIS [None]
  - RED BLOOD CELL SCHISTOCYTES PRESENT [None]
